FAERS Safety Report 7790381-3 (Version None)
Quarter: 2011Q3

REPORT INFORMATION
  Report Type: 
  Country: None (occurrence: None)
  Receive Date: 20110930
  Receipt Date: 20110920
  Transmission Date: 20111222
  Serious: Yes (Hospitalization, Other)
  Sender: FDA-Public Use
  Company Number: JP-UCBSA-040843

PATIENT
  Sex: Female

DRUGS (31)
  1. ISONIAZID [Concomitant]
     Dosage: TOTAL DAILY DOSE : 300 MG
     Dates: start: 20091015
  2. NICORANDIL [Concomitant]
     Dates: start: 20101109
  3. CYANOCOBALAMIN [Concomitant]
     Dosage: DAILY DOSE : ADEQUATE DOSE P.R.N
     Dates: start: 20110409
  4. CERTOLIZUMAB PEGOL [Suspect]
     Indication: RHEUMATOID ARTHRITIS
     Route: 058
     Dates: start: 20100225, end: 20110920
  5. CERTOLIZUMAB PEGOL [Suspect]
     Route: 058
     Dates: end: 20100212
  6. FOLIC ACID [Concomitant]
     Dosage: TOTAL DAILY DOSE : 50 MG/WEEK
     Dates: start: 20090828
  7. SENNOSIDE [Concomitant]
     Dosage: TOTAL DAILY DOSE : 24 MG
     Dates: start: 20090723
  8. SENNOSIDE [Concomitant]
     Dates: start: 20110324
  9. AMLODIPINE BESYLATE [Concomitant]
     Dosage: TOTAL DAILY DOSE :  5 MG
     Dates: start: 20090710
  10. CALCITRIOL [Concomitant]
     Dates: start: 20101102
  11. FLUNITRAZEPAM [Concomitant]
     Dates: start: 20101227
  12. ATENOLOL [Concomitant]
     Dosage: TOTAL DAILY DOSE : 25 MG
     Dates: start: 20090710
  13. GLIMEPIRIDE [Concomitant]
     Dosage: TOTAL DAILY DOSE : 3 MG
     Dates: start: 20090710
  14. CALCITRIOL [Concomitant]
     Dosage: TOTAL DAILY DOSE : 0.5 MCG
     Dates: start: 20090416
  15. MAGNESIUM OXIDE [Concomitant]
     Dates: start: 20110324
  16. CLOPIDOGREL BISULFATE [Concomitant]
     Dates: start: 20110811
  17. MUCOSTA [Concomitant]
     Dosage: TOTAL DAILY DOSE : 200 MG
     Dates: start: 20090430
  18. VOGLIBOSE [Concomitant]
     Dates: start: 20100828
  19. METHOTREXATE [Concomitant]
     Dosage: TOTAL DAILY DOSE : 2 MG/WEEK
     Dates: start: 20090914
  20. CELECOXIB [Concomitant]
     Dosage: TOTAL DAILY DOSE : 200 MG
     Dates: start: 20090624
  21. FOLIC ACID [Concomitant]
     Dosage: TOTAL DAILY DOSE : 50 MG/WEEK
     Dates: start: 20101007
  22. MUCOSTA [Concomitant]
     Dates: start: 20101102
  23. REBAMIPIDE [Concomitant]
     Dates: start: 20090430
  24. BENIDIPINE HYDROCHLORIDE [Concomitant]
     Dates: start: 20101104
  25. CERTOLIZUMAB PEGOL [Suspect]
     Route: 058
     Dates: start: 20091105
  26. PREDNISOLONE [Concomitant]
     Dosage: TOTAL DAILY DOSE : 2 MG
     Dates: start: 20090430
  27. BROTIZOLAM [Concomitant]
     Dosage: TOTAL DAILY DOSE : 0.25 MG
     Dates: start: 20090723
  28. LOXOPROFEN SODIUM HYDRATE [Concomitant]
     Dosage: ADEQUATE DOSE P.R.N.
     Dates: start: 20110324
  29. VALSARTAN [Concomitant]
     Dosage: TOTAL DAILY DOSE : 80 MG
     Dates: start: 20090710
  30. SODIUM RISEDRONATE HYDRATE [Concomitant]
     Dosage: TOTAL DAILY DOSE : 17.5 MG/WEEK
     Dates: start: 20090416
  31. VOGLIBOSE [Concomitant]
     Dosage: TOTAL DAILY DOSE : 0.9 MG
     Dates: start: 20091016

REACTIONS (3)
  - SICK SINUS SYNDROME [None]
  - MYOCARDIAL ISCHAEMIA [None]
  - ATRIAL FIBRILLATION [None]
